FAERS Safety Report 6627636-1 (Version None)
Quarter: 2010Q1

REPORT INFORMATION
  Report Type: 
  Country: None (occurrence: None)
  Receive Date: 20100311
  Receipt Date: 20100128
  Transmission Date: 20100710
  Serious: No
  Sender: FDA-Public Use
  Company Number: US-KINGPHARMUSA00001-K201000111

PATIENT
  Sex: Female

DRUGS (1)
  1. EMBEDA [Suspect]
     Dosage: 60 MG, UNK

REACTIONS (1)
  - MALAISE [None]
